FAERS Safety Report 7893117-0 (Version None)
Quarter: 2011Q4

REPORT INFORMATION
  Report Type: 
  Country: None (occurrence: None)
  Receive Date: 20111104
  Receipt Date: 20111101
  Transmission Date: 20120403
  Serious: Yes (Other)
  Sender: FDA-Public Use
  Company Number: NO-PFIZER INC-2011266878

PATIENT
  Age: 55 Year
  Sex: Female

DRUGS (1)
  1. ZOLOFT [Suspect]
     Indication: NECK INJURY
     Dosage: 50 MG, UNK
     Dates: start: 20111001

REACTIONS (1)
  - INTRAOCULAR PRESSURE INCREASED [None]
